FAERS Safety Report 14985729 (Version 1)
Quarter: 2018Q2

REPORT INFORMATION
  Report Type: Spontaneous
  Country: US (occurrence: US)
  Receive Date: 20180516
  Receipt Date: 20180516
  Transmission Date: 20180711
  Serious: Yes (Death)
  Sender: FDA-Public Use
  Company Number: None

PATIENT
  Age: 53 Year
  Sex: Male

DRUGS (17)
  1. METFORMIN [Concomitant]
     Active Substance: METFORMIN HYDROCHLORIDE
  2. AMOXICILLIN. [Concomitant]
     Active Substance: AMOXICILLIN
  3. FLUTICASONE SPR [Concomitant]
  4. RIOMET [Concomitant]
     Active Substance: METFORMIN HYDROCHLORIDE
  5. METOCLOPRAM [Concomitant]
     Active Substance: METOCLOPRAMIDE
  6. OXYCODONE [Concomitant]
     Active Substance: OXYCODONE
  7. ALECENSA [Suspect]
     Active Substance: ALECTINIB HYDROCHLORIDE
     Indication: LUNG NEOPLASM MALIGNANT
     Route: 048
     Dates: start: 20171116, end: 201805
  8. FLOVENT [Concomitant]
     Active Substance: FLUTICASONE PROPIONATE
  9. OMEPRAZOLE. [Concomitant]
     Active Substance: OMEPRAZOLE
  10. SALINE WOUND SPRAY [Concomitant]
  11. COPAXONE [Concomitant]
     Active Substance: GLATIRAMER ACETATE
  12. PREDNISONE. [Concomitant]
     Active Substance: PREDNISONE
  13. SMZ/TMP [Concomitant]
     Active Substance: SULFAMETHOXAZOLE\TRIMETHOPRIM
  14. WALTUSSIN [Concomitant]
  15. VENTOLIN [Concomitant]
     Active Substance: ALBUTEROL SULFATE
  16. AZITHROMYCIN ANHYDROUS. [Concomitant]
     Active Substance: AZITHROMYCIN ANHYDROUS
  17. IBUPROFEN. [Concomitant]
     Active Substance: IBUPROFEN

REACTIONS (1)
  - Death [None]

NARRATIVE: CASE EVENT DATE: 20180504
